FAERS Safety Report 6833347-X (Version None)
Quarter: 2010Q3

REPORT INFORMATION
  Report Type: 
  Country: None (occurrence: None)
  Receive Date: 20100712
  Receipt Date: 20070322
  Transmission Date: 20110219
  Serious: No
  Sender: FDA-Public Use
  Company Number: US-PFIZER INC-2007025249

PATIENT
  Age: 56 Year
  Sex: Female
  Weight: 63.5 kg

DRUGS (7)
  1. CHANTIX [Suspect]
     Indication: SMOKING CESSATION THERAPY
     Dates: start: 20070319
  2. LORTAB [Concomitant]
     Indication: OSTEOARTHRITIS
  3. SOMA [Concomitant]
     Indication: OSTEOARTHRITIS
  4. NEURONTIN [Concomitant]
  5. CYMBALTA [Concomitant]
  6. SYNTHROID [Concomitant]
     Indication: THYROID THERAPY
  7. ZELNORM [Concomitant]
     Indication: IRRITABLE BOWEL SYNDROME

REACTIONS (3)
  - BACK PAIN [None]
  - NAUSEA [None]
  - PAINFUL RESPIRATION [None]
